FAERS Safety Report 24239520 (Version 1)
Quarter: 2024Q3

REPORT INFORMATION
  Report Type: Spontaneous
  Country: US (occurrence: US)
  Receive Date: 20240822
  Receipt Date: 20240822
  Transmission Date: 20241016
  Serious: No
  Sender: AVADEL CNS PHARMA
  Company Number: US-AVADEL CNS PHARMACEUTICALS, LLC-2024AVA00734

PATIENT
  Sex: Male
  Weight: 61.224 kg

DRUGS (6)
  1. LUMRYZ [Suspect]
     Active Substance: SODIUM OXYBATE
     Indication: Narcolepsy
     Dosage: 7.5 G, ONCE NIGHTLY
     Route: 048
     Dates: start: 2024, end: 2024
  2. LUMRYZ [Suspect]
     Active Substance: SODIUM OXYBATE
     Indication: Cataplexy
     Dosage: 7.5 G, ONCE NIGHTLY
     Route: 048
     Dates: start: 2024, end: 2024
  3. LUMRYZ [Suspect]
     Active Substance: SODIUM OXYBATE
     Dosage: 7.5 G, ONCE NIGHTLY
     Route: 048
     Dates: start: 2024, end: 202405
  4. VYVANSE [Concomitant]
     Active Substance: LISDEXAMFETAMINE DIMESYLATE
     Dosage: 70 MG, ONCE DAILY (IF HE HASN^T TAKEN BY LATER IN THE DAY, HE WILL NOT TAKE IT TOO CLOSE TO LUMRYZ)
  5. METOPROLOL SUCCINATE [Concomitant]
     Active Substance: METOPROLOL SUCCINATE
     Dosage: 50 MG, ONCE DAILY
  6. VITAMIN D2 [Concomitant]
     Active Substance: ERGOCALCIFEROL
     Dosage: 1.25 MG, ONCE WEEKLY

REACTIONS (15)
  - Insomnia [Unknown]
  - Hypersomnia [Unknown]
  - Middle insomnia [Unknown]
  - Feeling abnormal [Recovered/Resolved]
  - Cognitive disorder [Unknown]
  - Dyspnoea [Recovered/Resolved]
  - Illness anxiety disorder [Unknown]
  - Abnormal behaviour [Unknown]
  - Psychotic disorder [Unknown]
  - Sleep apnoea syndrome [Recovered/Resolved]
  - Paranoia [Unknown]
  - Anxiety [Unknown]
  - Pain [Recovering/Resolving]
  - Therapeutic product effect variable [Recovered/Resolved]
  - Drug ineffective [Recovered/Resolved]

NARRATIVE: CASE EVENT DATE: 20240101
